FAERS Safety Report 22101085 (Version 1)
Quarter: 2023Q1

REPORT INFORMATION
  Report Type: Spontaneous
  Country: US (occurrence: US)
  Receive Date: 20230316
  Receipt Date: 20230316
  Transmission Date: 20230418
  Serious: No
  Sender: FDA-Public Use
  Company Number: US-Hikma Pharmaceuticals USA Inc.-US-H14001-22-01833

PATIENT
  Sex: Male

DRUGS (1)
  1. FLUTICASONE [Suspect]
     Active Substance: FLUTICASONE
     Indication: Sinus congestion
     Dosage: TWO SPRAYS IN EACH NOSTRIL
     Route: 045
     Dates: start: 20210604

REACTIONS (2)
  - Tinnitus [Recovered/Resolved]
  - Off label use [Unknown]
